FAERS Safety Report 16510915 (Version 1)
Quarter: 2019Q3

REPORT INFORMATION
  Report Type: Spontaneous
  Country: US (occurrence: US)
  Receive Date: 20190702
  Receipt Date: 20190702
  Transmission Date: 20191004
  Serious: Yes (Other)
  Sender: FDA-Public Use
  Company Number: US-ACCORD-069783

PATIENT
  Age: 70 Year
  Sex: Male
  Weight: 70.76 kg

DRUGS (1)
  1. ALLOPURINOL ACCORD [Suspect]
     Active Substance: ALLOPURINOL
     Indication: PROPHYLAXIS
     Dosage: STRENGTH: 300 MG
     Route: 048
     Dates: start: 20180606, end: 20180707

REACTIONS (2)
  - Product substitution issue [Unknown]
  - Gout [Recovered/Resolved]

NARRATIVE: CASE EVENT DATE: 20180705
